FAERS Safety Report 8380035-7 (Version None)
Quarter: 2012Q2

REPORT INFORMATION
  Report Type: 
  Country: None (occurrence: None)
  Receive Date: 20120523
  Receipt Date: 20120510
  Transmission Date: 20120825
  Serious: Yes (Hospitalization)
  Sender: FDA-Public Use
  Company Number: US-GLAXOSMITHKLINE-A0758033A

PATIENT
  Age: 70 Year
  Sex: Male
  Weight: 100 kg

DRUGS (10)
  1. COMBIVENT [Concomitant]
  2. COUMADIN [Concomitant]
  3. LIPITOR [Concomitant]
  4. GLUCOPHAGE [Concomitant]
  5. DIGOXIN [Concomitant]
  6. FUROSEMIDE [Concomitant]
  7. ADVAIR DISKUS 100/50 [Concomitant]
  8. METFORMIN HCL [Concomitant]
  9. AVANDIA [Suspect]
     Indication: TYPE 2 DIABETES MELLITUS
     Dosage: 4MG PER DAY
     Route: 048
     Dates: start: 20020101, end: 20061201
  10. TOPROL-XL [Concomitant]

REACTIONS (4)
  - PULMONARY EMBOLISM [None]
  - CARDIOVASCULAR DISORDER [None]
  - CARDIAC FAILURE CONGESTIVE [None]
  - RENAL DISORDER [None]
